FAERS Safety Report 9533686 (Version 3)
Quarter: 2013Q4

REPORT INFORMATION
  Report Type: Spontaneous
  Country: JP (occurrence: JP)
  Receive Date: 20130918
  Receipt Date: 20131028
  Transmission Date: 20140711
  Serious: Yes (Death)
  Sender: FDA-Public Use
  Company Number: JP-BRISTOL-MYERS SQUIBB COMPANY-19401926

PATIENT
  Age: 38 Year
  Sex: Male
  Weight: 68 kg

DRUGS (7)
  1. ABILIFY TABS [Suspect]
     Indication: HALLUCINATION
     Dosage: 6-12JUN13-12MG?13JUN-15JUL-24MG
     Route: 048
     Dates: start: 20130606, end: 20130715
  2. ABILIFY TABS [Suspect]
     Indication: DELUSION
     Dosage: 6-12JUN13-12MG?13JUN-15JUL-24MG
     Route: 048
     Dates: start: 20130606, end: 20130715
  3. UBRETID [Suspect]
     Indication: DYSURIA
     Route: 048
     Dates: start: 20130611, end: 20130715
  4. BENZALIN [Concomitant]
     Dosage: TAB
     Dates: start: 20130613, end: 20130725
  5. TAMSULOSIN [Concomitant]
     Dosage: TAB
     Route: 048
     Dates: start: 20130618, end: 20130715
  6. EURODIN [Concomitant]
     Dosage: TAB
     Dates: start: 20130602, end: 20130725
  7. ALOSENN [Concomitant]
     Dosage: GRANULES
     Dates: start: 20130620, end: 20130725

REACTIONS (1)
  - Death [Fatal]
